FAERS Safety Report 9836866 (Version 1)
Quarter: 2013Q4

REPORT INFORMATION
  Report Type: Spontaneous
  Country: US (occurrence: None)
  Receive Date: 20131127
  Receipt Date: 20131127
  Transmission Date: 20140711
  Serious: No
  Sender: FDA-Public Use
  Company Number: 223048

PATIENT
  Age: 52 Year
  Sex: Female

DRUGS (1)
  1. PICATO [Suspect]
     Indication: ACTINIC KERATOSIS
     Dosage: TOPICAL, 2 D

REACTIONS (9)
  - Eye swelling [None]
  - Application site vesicles [None]
  - Application site vesicles [None]
  - Application site pain [None]
  - Eye pain [None]
  - Accidental exposure to product [None]
  - Accidental exposure to product [None]
  - Drug administered at inappropriate site [None]
  - Inappropriate schedule of drug administration [None]
